FAERS Safety Report 11441958 (Version 1)
Quarter: 2015Q3

REPORT INFORMATION
  Report Type: Spontaneous
  Country: CA (occurrence: CA)
  Receive Date: 20150901
  Receipt Date: 20150901
  Transmission Date: 20151125
  Serious: Yes (Death)
  Sender: FDA-Public Use
  Company Number: CA-BAYER-2015-406258

PATIENT
  Age: 48 Year
  Sex: Female

DRUGS (3)
  1. PLAVIX [Interacting]
     Active Substance: CLOPIDOGREL BISULFATE
     Dosage: UNK
     Dates: start: 2012, end: 2012
  2. ACETYLSALICYLIC ACID (} 100 MG) [Suspect]
     Active Substance: ASPIRIN
     Dosage: UNK
     Dates: start: 2012, end: 2012
  3. HEPARIN [Interacting]
     Active Substance: HEPARIN SODIUM
     Dosage: UNK
     Route: 042
     Dates: start: 2012, end: 2012

REACTIONS (4)
  - Cerebral haemorrhage [Fatal]
  - Brain herniation [Fatal]
  - Labelled drug-drug interaction medication error [None]
  - Brain midline shift [Fatal]

NARRATIVE: CASE EVENT DATE: 2012
